FAERS Safety Report 10500779 (Version 2)
Quarter: 2014Q4

REPORT INFORMATION
  Report Type: Report from Study
  Country: US (occurrence: US)
  Receive Date: 20141007
  Receipt Date: 20141022
  Transmission Date: 20150528
  Serious: No
  Sender: FDA-Public Use
  Company Number: US-AMGEN-USASL2014075234

PATIENT
  Age: 45 Year
  Sex: Male
  Weight: 90.7 kg

DRUGS (1)
  1. ENBREL [Suspect]
     Active Substance: ETANERCEPT
     Indication: PSORIATIC ARTHROPATHY
     Dosage: 50 MG, QWK
     Route: 058
     Dates: start: 201408, end: 20141010

REACTIONS (5)
  - Fatigue [Unknown]
  - Injection site erythema [Unknown]
  - Upper respiratory tract infection [Unknown]
  - Injection site reaction [Unknown]
  - Sinusitis [Unknown]

NARRATIVE: CASE EVENT DATE: 20140909
